FAERS Safety Report 11768057 (Version 1)
Quarter: 2015Q4

REPORT INFORMATION
  Report Type: Spontaneous
  Country: US (occurrence: US)
  Receive Date: 20151123
  Receipt Date: 20151123
  Transmission Date: 20160304
  Serious: No
  Sender: FDA-Public Use
  Company Number: US-JNJFOC-20151011203

PATIENT
  Age: 71 Year
  Sex: Female

DRUGS (5)
  1. PLAVIX [Concomitant]
     Active Substance: CLOPIDOGREL BISULFATE
     Indication: PRODUCT USED FOR UNKNOWN INDICATION
     Route: 065
  2. ZYRTEC [Suspect]
     Active Substance: CETIRIZINE HYDROCHLORIDE
     Indication: URTICARIA
     Dosage: 1 TABLET, 2X IN 24HOURS
     Route: 048
     Dates: start: 20151014
  3. PREDNISONE. [Concomitant]
     Active Substance: PREDNISONE
     Indication: EYE OPERATION
     Route: 065
  4. AMLODIPINE [Concomitant]
     Active Substance: AMLODIPINE BESYLATE
     Indication: HYPERTENSION
     Route: 065
  5. ZYRTEC [Suspect]
     Active Substance: CETIRIZINE HYDROCHLORIDE
     Indication: HYPERSENSITIVITY
     Dosage: 1 TABLET, 2X IN 24HOURS
     Route: 048
     Dates: start: 20151014

REACTIONS (3)
  - Therapeutic response unexpected [Unknown]
  - Wrong patient received medication [Unknown]
  - Product use issue [Unknown]
